FAERS Safety Report 4393220-6 (Version None)
Quarter: 2004Q3

REPORT INFORMATION
  Report Type: 
  Country: None (occurrence: None)
  Receive Date: 20040701
  Receipt Date: 20040617
  Transmission Date: 20050211
  Serious: No
  Sender: FDA-Public Use
  Company Number: 04P-167-0264202-00

PATIENT
  Sex: Female
  Weight: 59 kg

DRUGS (3)
  1. KALETRA [Suspect]
     Dosage: 3 DOSAGE FORMS, 2 IN 1 D, PER ORAL
     Route: 048
     Dates: start: 20020101
  2. DIDANOSINE [Concomitant]
  3. ZIDOVUDINE [Concomitant]

REACTIONS (2)
  - ASCITES [None]
  - OEDEMA PERIPHERAL [None]
